FAERS Safety Report 14764891 (Version 1)
Quarter: 2018Q2

REPORT INFORMATION
  Report Type: Spontaneous
  Country: US (occurrence: US)
  Receive Date: 20180410
  Receipt Date: 20180410
  Transmission Date: 20180711
  Serious: Yes (Hospitalization, Disabling)
  Sender: FDA-Public Use
  Company Number: None

PATIENT
  Age: 48 Year
  Sex: Female
  Weight: 69.75 kg

DRUGS (8)
  1. TRILEPTAL [Concomitant]
     Active Substance: OXCARBAZEPINE
  2. VITAMIN D [Concomitant]
     Active Substance: CHOLECALCIFEROL
  3. DRONABINOL. [Concomitant]
     Active Substance: DRONABINOL
  4. CBD OIL [Concomitant]
     Active Substance: CANNABIDIOL
  5. OCREVUS [Suspect]
     Active Substance: OCRELIZUMAB
     Indication: MULTIPLE SCLEROSIS
     Dosage: ?          OTHER FREQUENCY:EVERY SIX MONTHS;?
     Route: 042
     Dates: start: 20170510, end: 20171113
  6. MODAFANIL [Concomitant]
     Active Substance: MODAFINIL
  7. CALCIUM [Concomitant]
     Active Substance: CALCIUM
  8. MULTIVITAMIN [Concomitant]
     Active Substance: VITAMINS

REACTIONS (6)
  - Glossopharyngeal neuralgia [None]
  - Dyspnoea [None]
  - Vocal cord paresis [None]
  - Oropharyngeal pain [None]
  - Abscess [None]
  - Throat tightness [None]

NARRATIVE: CASE EVENT DATE: 20171113
